FAERS Safety Report 4446522-9 (Version None)
Quarter: 2004Q3

REPORT INFORMATION
  Report Type: 
  Country: None (occurrence: None)
  Receive Date: 20040902
  Receipt Date: 20040823
  Transmission Date: 20050211
  Serious: Yes (Hospitalization)
  Sender: FDA-Public Use
  Company Number: 2003JP005991

PATIENT
  Age: 60 Year
  Sex: Female

DRUGS (12)
  1. TACROLIMUS CAPSULES (TRACOLIMUS CAPSULES) [Suspect]
     Indication: RENAL TRANSPLANT
     Dosage: SEE IMAGE
     Route: 048
     Dates: start: 20020402, end: 20020404
  2. TACROLIMUS CAPSULES (TRACOLIMUS CAPSULES) [Suspect]
     Indication: RENAL TRANSPLANT
     Dosage: SEE IMAGE
     Route: 048
     Dates: start: 20020405, end: 20020429
  3. TACROLIMUS CAPSULES (TRACOLIMUS CAPSULES) [Suspect]
     Indication: RENAL TRANSPLANT
     Dosage: SEE IMAGE
     Route: 048
     Dates: start: 20020430
  4. PREDNISOLONE [Suspect]
     Dosage: SEE IMAGE
     Route: 048
     Dates: start: 20020403, end: 20020409
  5. PREDNISOLONE [Suspect]
     Dosage: SEE IMAGE
     Route: 048
     Dates: start: 20020410
  6. GASTER (FMOTIDINE) [Concomitant]
  7. ALLOID (SODIUM ALGINATE) [Concomitant]
  8. LASIX [Concomitant]
  9. SIGMART (NICORANDIL) [Concomitant]
  10. ENALAPRIL MALEATE [Concomitant]
  11. BUFFERIN [Concomitant]
  12. ISOSORBIDE MONONITRATE [Concomitant]

REACTIONS (4)
  - ANOREXIA [None]
  - CYTOMEGALOVIRUS INFECTION [None]
  - SKIN ULCER [None]
  - VULVAL ULCERATION [None]
